FAERS Safety Report 6566000-0 (Version None)
Quarter: 2010Q1

REPORT INFORMATION
  Report Type: 
  Country: None (occurrence: None)
  Receive Date: 20100129
  Receipt Date: 20100129
  Transmission Date: 20100710
  Serious: Yes (Hospitalization)
  Sender: FDA-Public Use
  Company Number: None

PATIENT
  Age: 57 Year
  Sex: Female
  Weight: 83.9154 kg

DRUGS (1)
  1. AVELOX [Suspect]
     Indication: CYSTITIS BACTERIAL
     Dosage: ONE TABLET ONCE A DAY PO
     Route: 047
     Dates: start: 20100123, end: 20100123

REACTIONS (1)
  - ANAPHYLACTIC SHOCK [None]
